FAERS Safety Report 24855366 (Version 1)
Quarter: 2025Q1

REPORT INFORMATION
  Report Type: Spontaneous
  Country: JP (occurrence: JP)
  Receive Date: 20250117
  Receipt Date: 20250117
  Transmission Date: 20250409
  Serious: Yes (Hospitalization, Other)
  Sender: Steriscience PTE
  Company Number: JP-STERISCIENCE B.V.-2025-ST-000036

PATIENT
  Age: 21 Year
  Sex: Male

DRUGS (9)
  1. ROCURONIUM BROMIDE [Interacting]
     Active Substance: ROCURONIUM BROMIDE
     Indication: Paralysis
     Route: 042
  2. SUGAMMADEX [Interacting]
     Active Substance: SUGAMMADEX
     Indication: Neuromuscular blockade reversal
     Route: 042
  3. PROPOFOL [Interacting]
     Active Substance: PROPOFOL
     Indication: Induction and maintenance of anaesthesia
     Route: 042
  4. PROPOFOL [Interacting]
     Active Substance: PROPOFOL
     Route: 042
  5. REMIFENTANIL [Interacting]
     Active Substance: REMIFENTANIL
     Indication: Induction and maintenance of anaesthesia
     Dosage: 0.3 MICROGRAM/KILOGRAM, QMINUTE
     Route: 065
  6. REMIFENTANIL [Interacting]
     Active Substance: REMIFENTANIL
     Dosage: 0.15 MICROGRAM/KILOGRAM, QMINUTE, ANESTHESIA WAS MAINTAINED
     Route: 065
  7. SEVOFLURANE [Concomitant]
     Active Substance: SEVOFLURANE
     Indication: Induction of anaesthesia
     Route: 065
  8. NITROUS OXIDE [Concomitant]
     Active Substance: NITROUS OXIDE
     Indication: Induction of anaesthesia
     Route: 065
  9. EPINEPHRINE BITARTRATE;LIDOCAINE [Concomitant]
     Indication: Dental local anaesthesia
     Route: 065

REACTIONS (4)
  - Drug interaction [Unknown]
  - Sinus arrest [None]
  - Bradyarrhythmia [None]
  - Off label use [Unknown]
